FAERS Safety Report 16290185 (Version 1)
Quarter: 2019Q2

REPORT INFORMATION
  Report Type: Spontaneous
  Country: FR (occurrence: FR)
  Receive Date: 20190509
  Receipt Date: 20190509
  Transmission Date: 20190711
  Serious: Yes (Other)
  Sender: FDA-Public Use
  Company Number: FR-LEO PHARMA-318441

PATIENT
  Age: 21 Year
  Sex: Female
  Weight: 109 kg

DRUGS (3)
  1. DIPROSONE [Suspect]
     Active Substance: BETAMETHASONE DIPROPIONATE
     Indication: PSORIASIS
     Route: 003
  2. DERMOVAL (CLOBETASOL PROPIONATE) [Suspect]
     Active Substance: CLOBETASOL PROPIONATE
     Indication: PSORIASIS
     Route: 003
     Dates: start: 201809, end: 201901
  3. DAIVOBET [Suspect]
     Active Substance: BETAMETHASONE DIPROPIONATE\CALCIPOTRIENE
     Indication: PSORIASIS
     Route: 003
     Dates: start: 201809

REACTIONS (2)
  - Lipohypertrophy [Not Recovered/Not Resolved]
  - Skin striae [Not Recovered/Not Resolved]

NARRATIVE: CASE EVENT DATE: 201810
